FAERS Safety Report 8078857-5 (Version None)
Quarter: 2012Q1

REPORT INFORMATION
  Report Type: 
  Country: None (occurrence: None)
  Receive Date: 20120127
  Receipt Date: 20110111
  Transmission Date: 20120608
  Serious: No
  Sender: FDA-Public Use
  Company Number: US-ABBOTT-11P-163-0696516-00

PATIENT
  Age: 13 Year
  Sex: Female

DRUGS (3)
  1. MIRALAX [Concomitant]
     Indication: CROHN'S DISEASE
     Route: 048
  2. HUMIRA [Suspect]
     Indication: CROHN'S DISEASE
     Dates: start: 20101001
  3. ASACOL [Concomitant]
     Indication: CROHN'S DISEASE
     Route: 048

REACTIONS (3)
  - INJECTION SITE PRURITUS [None]
  - PRURITUS [None]
  - INJECTION SITE ERYTHEMA [None]
